FAERS Safety Report 4646580-2 (Version None)
Quarter: 2005Q2

REPORT INFORMATION
  Report Type: 
  Country: None (occurrence: None)
  Receive Date: 20050427
  Receipt Date: 20041230
  Transmission Date: 20051028
  Serious: No
  Sender: FDA-Public Use
  Company Number: US-GLAXOSMITHKLINE-A0538834A

PATIENT
  Age: 7 Year
  Sex: Female

DRUGS (1)
  1. FLOVENT [Suspect]
     Indication: COUGH
     Dosage: 100MCG TWICE PER DAY
     Route: 055
     Dates: start: 20041229

REACTIONS (1)
  - ARTHRALGIA [None]
